FAERS Safety Report 12569919 (Version 1)
Quarter: 2016Q3

REPORT INFORMATION
  Report Type: Spontaneous
  Country: GB (occurrence: GB)
  Receive Date: 20160719
  Receipt Date: 20160719
  Transmission Date: 20161109
  Serious: Yes (Other)
  Sender: FDA-Public Use
  Company Number: GB-GLAXOSMITHKLINE-B0359599A

PATIENT
  Age: 31 Year
  Sex: Male

DRUGS (6)
  1. PARACETAMOL [Suspect]
     Active Substance: ACETAMINOPHEN
     Indication: PRODUCT USED FOR UNKNOWN INDICATION
     Dosage: UNK
     Route: 065
  2. SEROXAT [Suspect]
     Active Substance: PAROXETINE HYDROCHLORIDE
     Indication: PRODUCT USED FOR UNKNOWN INDICATION
     Dosage: UNK, 1D
     Route: 065
     Dates: start: 19991121, end: 200306
  3. PAROXETINE. [Suspect]
     Active Substance: PAROXETINE
     Dosage: 50 MG, QD
  4. PAROXETINE. [Suspect]
     Active Substance: PAROXETINE
     Indication: PRODUCT USED FOR UNKNOWN INDICATION
     Dosage: 20 MG, QD
  5. FLUOXETINE HYDROCHLORIDE. [Concomitant]
     Active Substance: FLUOXETINE HYDROCHLORIDE
     Indication: PRODUCT USED FOR UNKNOWN INDICATION
     Dosage: UNK
     Route: 065
  6. CO-DYDRAMOL [Suspect]
     Active Substance: ACETAMINOPHEN\DIHYDROCODEINE
     Indication: PRODUCT USED FOR UNKNOWN INDICATION
     Dosage: UNK
     Route: 065

REACTIONS (18)
  - Decreased appetite [Unknown]
  - Asthenia [Unknown]
  - Suicidal ideation [Unknown]
  - Tension [Unknown]
  - Nausea [Unknown]
  - Paraesthesia [Unknown]
  - Depressed mood [Unknown]
  - Disturbance in attention [Unknown]
  - Apathy [Unknown]
  - Withdrawal syndrome [Unknown]
  - Insomnia [Unknown]
  - Tearfulness [Unknown]
  - Agitation [Unknown]
  - Headache [Unknown]
  - Depression [Unknown]
  - Dizziness [Unknown]
  - Overdose [Unknown]
  - Vomiting [Unknown]

NARRATIVE: CASE EVENT DATE: 200003
